FAERS Safety Report 11174939 (Version 1)
Quarter: 2015Q2

REPORT INFORMATION
  Report Type: Spontaneous
  Country: US (occurrence: None)
  Receive Date: 20150608
  Receipt Date: 20150608
  Transmission Date: 20150821
  Serious: Yes (Other)
  Sender: FDA-Public Use
  Company Number: None

PATIENT
  Age: 88 Year
  Sex: Female
  Weight: 59.88 kg

DRUGS (4)
  1. AMIODARONE [Suspect]
     Active Substance: AMIODARONE
     Indication: ATRIAL FIBRILLATION
     Dates: start: 20150515, end: 20150601
  2. INSULIN [Concomitant]
     Active Substance: INSULIN NOS
  3. HEART MEDICATION [Concomitant]
     Active Substance: UNSPECIFIED INGREDIENT
  4. THYROID MEDICATION [Concomitant]
     Active Substance: UNSPECIFIED INGREDIENT

REACTIONS (7)
  - Mental impairment [None]
  - Dysstasia [None]
  - Incoherent [None]
  - Confusional state [None]
  - Dyskinesia [None]
  - Urinary retention [None]
  - Refusal of treatment by patient [None]

NARRATIVE: CASE EVENT DATE: 20150602
